FAERS Safety Report 8871136 (Version 3)
Quarter: 2013Q2

REPORT INFORMATION
  Report Type: Spontaneous
  Country: US (occurrence: US)
  Receive Date: 20121029
  Receipt Date: 20130415
  Transmission Date: 20140414
  Serious: Yes (Other)
  Sender: FDA-Public Use
  Company Number: US-ROCHE-792015

PATIENT
  Age: 19 Year
  Sex: Male
  Weight: 70.37 kg

DRUGS (7)
  1. ACCUTANE [Suspect]
     Indication: ACNE
     Route: 048
     Dates: start: 200209, end: 200301
  2. ACCUTANE [Suspect]
     Indication: CYST
     Route: 048
  3. ACCUTANE [Suspect]
     Route: 048
  4. AMNESTEEM [Suspect]
     Indication: ACNE
     Route: 065
     Dates: start: 200306, end: 200308
  5. AMNESTEEM [Suspect]
     Route: 065
     Dates: start: 200907, end: 200912
  6. CLARAVIS [Suspect]
     Indication: ACNE
     Route: 065
     Dates: start: 20100113, end: 201003
  7. ADDERALL [Concomitant]

REACTIONS (7)
  - Colitis ulcerative [Unknown]
  - Inflammatory bowel disease [Unknown]
  - Anxiety [Unknown]
  - Dry skin [Unknown]
  - Arthralgia [Unknown]
  - Hepatic enzyme increased [Unknown]
  - Lip dry [Unknown]
